FAERS Safety Report 14430655 (Version 5)
Quarter: 2019Q4

REPORT INFORMATION
  Report Type: Report from Study
  Country: DE (occurrence: DE)
  Receive Date: 20180124
  Receipt Date: 20191011
  Transmission Date: 20200122
  Serious: Yes (Death, Other)
  Sender: FDA-Public Use
  Company Number: DE-IPSEN BIOPHARMACEUTICALS, INC.-2018-01085

PATIENT
  Age: 51 Year
  Sex: Male
  Weight: 83 kg

DRUGS (16)
  1. PEGYLATED LIPOSOMAL IRINOTECAN [Suspect]
     Active Substance: IRINOTECAN HYDROCHLORIDE
     Indication: OFF LABEL USE
     Dosage: 290 MG
     Route: 065
     Dates: start: 20170322, end: 20170322
  2. PANITUMUMAB [Suspect]
     Active Substance: PANITUMUMAB
     Indication: COLORECTAL CANCER METASTATIC
     Route: 042
     Dates: start: 20170322
  3. PANTOPRAZOLE RATIOPHARM [Concomitant]
  4. ALOXI [Concomitant]
     Active Substance: PALONOSETRON HYDROCHLORIDE
     Dates: start: 20170125, end: 20170322
  5. DOXYCYCLIN RATIOPHARM [Concomitant]
     Dates: start: 20170125
  6. FOLINIC ACID [Suspect]
     Active Substance: LEUCOVORIN
     Indication: COLORECTAL CANCER METASTATIC
     Route: 065
     Dates: start: 20170125
  7. FLUOROURACIL. [Suspect]
     Active Substance: FLUOROURACIL
     Route: 042
     Dates: start: 20170125
  8. PANITUMUMAB [Suspect]
     Active Substance: PANITUMUMAB
     Route: 042
     Dates: start: 20170125
  9. PEGYLATED LIPOSOMAL IRINOTECAN [Suspect]
     Active Substance: IRINOTECAN HYDROCHLORIDE
     Indication: COLORECTAL CANCER METASTATIC
     Dosage: 300 MG
     Route: 065
     Dates: start: 20170125, end: 20170125
  10. FLUOROURACIL. [Suspect]
     Active Substance: FLUOROURACIL
     Route: 042
     Dates: start: 20170322
  11. FORTECORTIN [Concomitant]
     Active Substance: DEXAMETHASONE
     Dates: start: 20170125, end: 20170322
  12. FLUOROURACIL. [Suspect]
     Active Substance: FLUOROURACIL
     Indication: COLORECTAL CANCER METASTATIC
     Route: 040
     Dates: start: 20170125
  13. FLUOROURACIL. [Suspect]
     Active Substance: FLUOROURACIL
     Route: 040
     Dates: start: 20170322
  14. GRANISETRON [Concomitant]
     Active Substance: GRANISETRON
     Dates: start: 20170125, end: 20170322
  15. NOVALGIN [Concomitant]
  16. HYDROCORTISON [Concomitant]
     Active Substance: HYDROCORTISONE

REACTIONS (5)
  - Rash [Fatal]
  - Off label use [Unknown]
  - Colorectal cancer metastatic [Fatal]
  - Malignant neoplasm progression [Fatal]
  - Metastases to lung [Fatal]

NARRATIVE: CASE EVENT DATE: 20170208
